FAERS Safety Report 15640443 (Version 2)
Quarter: 2019Q1

REPORT INFORMATION
  Report Type: Spontaneous
  Country: US (occurrence: US)
  Receive Date: 20181120
  Receipt Date: 20190121
  Transmission Date: 20190417
  Serious: Yes (Hospitalization, Other)
  Sender: FDA-Public Use
  Company Number: US-ASTRAZENECA-2018SF49806

PATIENT
  Age: 32611 Day
  Sex: Female
  Weight: 77.1 kg

DRUGS (16)
  1. FASLODEX [Suspect]
     Active Substance: FULVESTRANT
     Indication: BREAST CANCER METASTATIC
     Dosage: 500.0MG UNKNOWN
     Route: 030
     Dates: start: 20181031
  2. ANASTROZOLE. [Suspect]
     Active Substance: ANASTROZOLE
     Indication: BREAST CANCER METASTATIC
     Dosage: 1.0MG UNKNOWN
     Route: 030
     Dates: start: 2016
  3. LEVOTHYROXINE. [Concomitant]
     Active Substance: LEVOTHYROXINE
     Indication: HYPOTHYROIDISM
     Route: 048
  4. VERZENIO [Suspect]
     Active Substance: ABEMACICLIB
     Indication: BREAST CANCER METASTATIC
     Route: 048
     Dates: start: 20181215
  5. APIXABAN [Concomitant]
     Active Substance: APIXABAN
     Indication: ATRIAL FLUTTER
     Route: 048
  6. XGEVA [Concomitant]
     Active Substance: DENOSUMAB
     Dates: start: 20190101
  7. FASLODEX [Suspect]
     Active Substance: FULVESTRANT
     Indication: BREAST CANCER METASTATIC
     Dosage: 500.0MG UNKNOWN
     Route: 030
     Dates: start: 20181113
  8. ANASTROZOLE. [Suspect]
     Active Substance: ANASTROZOLE
     Indication: BREAST CANCER METASTATIC
     Dosage: UNKNOWN
     Route: 030
     Dates: end: 201801
  9. METOPROLOL. [Suspect]
     Active Substance: METOPROLOL
     Indication: HYPERTENSION
     Route: 048
     Dates: start: 20180918
  10. POTASSIUM [Concomitant]
     Active Substance: POTASSIUM
     Route: 048
  11. ANASTROZOLE. [Suspect]
     Active Substance: ANASTROZOLE
     Indication: BREAST CANCER METASTATIC
     Dosage: 500.0MG UNKNOWN
     Route: 030
     Dates: start: 20181031
  12. FASLODEX [Suspect]
     Active Substance: FULVESTRANT
     Indication: BREAST CANCER METASTATIC
     Dosage: 500.0MG UNKNOWN
     Route: 030
     Dates: start: 20181226
  13. LASIX [Concomitant]
     Active Substance: FUROSEMIDE
     Route: 048
  14. FASLODEX [Suspect]
     Active Substance: FULVESTRANT
     Indication: BREAST CANCER METASTATIC
     Dosage: 500.0MG UNKNOWN
     Route: 030
     Dates: start: 20181127
  15. FASLODEX [Suspect]
     Active Substance: FULVESTRANT
     Indication: BREAST CANCER METASTATIC
     Dosage: 500.0MG UNKNOWN
     Route: 030
  16. IBRANCE [Suspect]
     Active Substance: PALBOCICLIB

REACTIONS (20)
  - Haemoglobin decreased [Unknown]
  - Fatigue [Unknown]
  - Breast cancer metastatic [Unknown]
  - Atrial flutter [Unknown]
  - Atrial fibrillation [Unknown]
  - Dyspnoea exertional [Unknown]
  - Blood urea increased [Unknown]
  - Urinary tract infection bacterial [Unknown]
  - Haematochezia [Unknown]
  - Nausea [Unknown]
  - Platelet count decreased [Unknown]
  - Weight decreased [Unknown]
  - Pain in extremity [Unknown]
  - Vomiting [Unknown]
  - Decreased appetite [Unknown]
  - Staphylococcal infection [Unknown]
  - Blood creatinine increased [Unknown]
  - Dyspnoea [Unknown]
  - Pleural effusion [Unknown]
  - Klebsiella infection [Unknown]

NARRATIVE: CASE EVENT DATE: 20180918
